FAERS Safety Report 7805981-1 (Version None)
Quarter: 2011Q4

REPORT INFORMATION
  Report Type: 
  Country: None (occurrence: None)
  Receive Date: 20111006
  Receipt Date: 20111006
  Transmission Date: 20120403
  Serious: No
  Sender: FDA-Public Use
  Company Number: None

PATIENT
  Age: 14 Year
  Sex: Male
  Weight: 90.7194 kg

DRUGS (1)
  1. MYCOPHENOLATE MEFETIL [Suspect]
     Indication: IGA NEPHROPATHY
     Dosage: 500 MG BID PO
     Route: 048
     Dates: start: 20101201, end: 20110110

REACTIONS (4)
  - PRODUCT SUBSTITUTION ISSUE [None]
  - SKIN BURNING SENSATION [None]
  - ERYTHEMA [None]
  - PAIN OF SKIN [None]
